FAERS Safety Report 7545828-4 (Version None)
Quarter: 2011Q2

REPORT INFORMATION
  Report Type: 
  Country: None (occurrence: None)
  Receive Date: 20110613
  Receipt Date: 20110613
  Transmission Date: 20111010
  Serious: No
  Sender: FDA-Public Use
  Company Number: None

PATIENT
  Sex: Female
  Weight: 58.9676 kg

DRUGS (1)
  1. BUPROPION HYDROCHLORIDE [Suspect]
     Indication: MAJOR DEPRESSION
     Dosage: THREE TABLETS EACH MORNING PO
     Route: 048
     Dates: start: 20110406, end: 20110610

REACTIONS (4)
  - DEPRESSION [None]
  - MEMORY IMPAIRMENT [None]
  - DISEASE RECURRENCE [None]
  - PRODUCT SUBSTITUTION ISSUE [None]
